FAERS Safety Report 13471632 (Version 1)
Quarter: 2017Q2

REPORT INFORMATION
  Report Type: Spontaneous
  Country: US (occurrence: US)
  Receive Date: 20170424
  Receipt Date: 20170424
  Transmission Date: 20170830
  Serious: Yes (Other)
  Sender: FDA-Public Use
  Company Number: US-PFIZER INC-2017171262

PATIENT
  Age: 71 Year
  Sex: Male
  Weight: 93 kg

DRUGS (6)
  1. REGRANEX [Suspect]
     Active Substance: BECAPLERMIN
     Dosage: UNK, 1X/DAY (12 HOURS ON AND 12 HOURS OFF)
     Route: 061
     Dates: start: 20170324
  2. GAVISCON [Concomitant]
     Active Substance: ALUMINUM HYDROXIDE\MAGNESIUM CARBONATE
     Dosage: UNK
  3. REGRANEX [Suspect]
     Active Substance: BECAPLERMIN
     Indication: WOUND
     Dosage: UNK UNK, 1X/DAY (12 HOURS ON AND 12 HOURS OFF) (APPROXIMATELY EIGHT TIMES THE THICKNESS RECOMMEND)
     Route: 061
     Dates: start: 20170228, end: 20170311
  4. COREG [Concomitant]
     Active Substance: CARVEDILOL
     Dosage: UNK
  5. CLINDAMYCIN HCL [Suspect]
     Active Substance: CLINDAMYCIN HYDROCHLORIDE
     Indication: WOUND INFECTION
     Dosage: 300 MG, 3X/DAY
     Dates: start: 20170323
  6. ZANTAC [Concomitant]
     Active Substance: RANITIDINE HYDROCHLORIDE
     Dosage: UNK

REACTIONS (5)
  - Wound infection bacterial [Recovering/Resolving]
  - Liver function test increased [Unknown]
  - Drug ineffective [Recovering/Resolving]
  - Application site dryness [Recovering/Resolving]
  - Skin maceration [Recovering/Resolving]

NARRATIVE: CASE EVENT DATE: 20170309
